FAERS Safety Report 8880398 (Version 1)
Quarter: 2012Q4

REPORT INFORMATION
  Report Type: 
  Country: IT (occurrence: IT)
  Receive Date: 20121031
  Receipt Date: 20121031
  Transmission Date: 20130627
  Serious: Yes (Other)
  Sender: FDA-Public Use
  Company Number: PHHY2012IT097154

PATIENT
  Age: 68 Year
  Sex: Male

DRUGS (4)
  1. PERINDOPRIL [Suspect]
     Indication: HYPERTENSION
     Dosage: 5 mg, UNK
     Route: 048
     Dates: start: 20120701, end: 20120930
  2. BISOPROLOL [Suspect]
     Indication: HYPERTENSION
     Dosage: 5 mg, UNK
     Route: 048
     Dates: start: 20120701, end: 20120930
  3. COVERSYL [Concomitant]
     Dosage: 5 mg per day
     Dates: start: 2008
  4. CONGESCOR [Concomitant]
     Dosage: 5 mg per day
     Dates: start: 2008

REACTIONS (5)
  - Loss of consciousness [Unknown]
  - Road traffic accident [Unknown]
  - Head injury [Unknown]
  - Contusion [Unknown]
  - Blood pressure increased [Recovering/Resolving]
